FAERS Safety Report 24312523 (Version 1)
Quarter: 2024Q3

REPORT INFORMATION
  Report Type: Spontaneous
  Country: US (occurrence: US)
  Receive Date: 20240912
  Receipt Date: 20240912
  Transmission Date: 20241016
  Serious: Yes (Other)
  Sender: PFIZER
  Company Number: US-PFIZER INC-202400253343

PATIENT
  Age: 66 Year
  Sex: Female
  Weight: 81.6 kg

DRUGS (2)
  1. TRASTUZUMAB [Suspect]
     Active Substance: TRASTUZUMAB
     Dosage: UNK, CYCLIC(Q 21D)
     Route: 042
     Dates: start: 20240522
  2. CAPECITABINE [Suspect]
     Active Substance: CAPECITABINE
     Dosage: 500 MG, 2X/DAY
     Route: 048
     Dates: start: 20240522

REACTIONS (4)
  - Neuropathy peripheral [Unknown]
  - Loss of personal independence in daily activities [Unknown]
  - Rash [Not Recovered/Not Resolved]
  - Oedema peripheral [Unknown]
